FAERS Safety Report 25478023 (Version 1)
Quarter: 2025Q2

REPORT INFORMATION
  Report Type: Report from Study
  Country: US (occurrence: US)
  Receive Date: 20250625
  Receipt Date: 20250625
  Transmission Date: 20250717
  Serious: Yes (Death)
  Sender: NOVARTIS
  Company Number: US-002147023-NVSC2025US100602

PATIENT
  Sex: Male

DRUGS (1)
  1. PLUVICTO [Suspect]
     Active Substance: LUTETIUM LU-177 VIPIVOTIDE TETRAXETAN
     Indication: Product used for unknown indication
     Route: 065
     Dates: start: 20250623

REACTIONS (1)
  - Death [Fatal]
